FAERS Safety Report 12192922 (Version 2)
Quarter: 2016Q2

REPORT INFORMATION
  Report Type: Report from Study
  Country: JP (occurrence: JP)
  Receive Date: 20160318
  Receipt Date: 20160531
  Transmission Date: 20160815
  Serious: Yes (Hospitalization, Other)
  Sender: FDA-Public Use
  Company Number: JP-009507513-1603JPN006363

PATIENT
  Age: 2 Year
  Sex: Male
  Weight: 10 kg

DRUGS (38)
  1. COSMEGEN [Suspect]
     Active Substance: DACTINOMYCIN
     Dosage: UNK
     Route: 042
     Dates: start: 20141014, end: 20141018
  2. COSMEGEN [Suspect]
     Active Substance: DACTINOMYCIN
     Dosage: UNK
     Route: 042
     Dates: start: 20150212, end: 20150216
  3. ONCOVIN [Suspect]
     Active Substance: VINCRISTINE SULFATE
     Dosage: UNK
     Route: 042
     Dates: start: 20150310, end: 20150310
  4. ENDOXAN [Suspect]
     Active Substance: CYCLOPHOSPHAMIDE
     Dosage: UNK
     Route: 041
     Dates: start: 20131216, end: 20141016
  5. ENDOXAN [Suspect]
     Active Substance: CYCLOPHOSPHAMIDE
     Dosage: UNK
     Route: 041
     Dates: start: 20150310, end: 20150312
  6. BACTRAMIN [Concomitant]
     Active Substance: SULFAMETHOXAZOLE\TRIMETHOPRIM
     Indication: ANTIFUNGAL PROPHYLAXIS
     Route: 048
  7. METHOTREXATE [Concomitant]
     Active Substance: METHOTREXATE
     Dosage: UNK
     Route: 051
     Dates: start: 20150310, end: 20150310
  8. TEMOZOLOMIDE. [Suspect]
     Active Substance: TEMOZOLOMIDE
     Dosage: 200 MG/SQM, QD
     Route: 041
     Dates: start: 20141212, end: 20141216
  9. COSMEGEN [Suspect]
     Active Substance: DACTINOMYCIN
     Dosage: UNK
     Route: 042
     Dates: start: 20141212, end: 20141212
  10. ONCOVIN [Suspect]
     Active Substance: VINCRISTINE SULFATE
     Dosage: UNK
     Route: 042
     Dates: start: 20131216, end: 20141014
  11. CYLOCIDE [Concomitant]
     Active Substance: CYTARABINE
     Dosage: UNK
     Route: 051
     Dates: start: 20141113, end: 20141113
  12. SOLU-CORTEF [Concomitant]
     Active Substance: HYDROCORTISONE SODIUM SUCCINATE
     Indication: FOOD ALLERGY
     Dosage: UNK
     Route: 051
     Dates: start: 20131216, end: 20140910
  13. SOLU-CORTEF [Concomitant]
     Active Substance: HYDROCORTISONE SODIUM SUCCINATE
     Indication: VIRAL INFECTION
     Dosage: UNK
     Route: 051
     Dates: start: 20141113, end: 20141113
  14. SOLU-CORTEF [Concomitant]
     Active Substance: HYDROCORTISONE SODIUM SUCCINATE
     Indication: ALANINE AMINOTRANSFERASE INCREASED
     Dosage: UNK
     Route: 051
     Dates: start: 20151014, end: 20151015
  15. ADRIACIN [Suspect]
     Active Substance: DOXORUBICIN HYDROCHLORIDE
     Dosage: UNK
     Route: 041
     Dates: start: 20140610, end: 20140911
  16. ADRIACIN [Suspect]
     Active Substance: DOXORUBICIN HYDROCHLORIDE
     Dosage: UNK
     Route: 041
     Dates: start: 20150113, end: 20150114
  17. METHOTREXATE [Concomitant]
     Active Substance: METHOTREXATE
     Dosage: UNK
     Route: 051
     Dates: start: 20141113, end: 20141113
  18. ADRIACIN [Suspect]
     Active Substance: DOXORUBICIN HYDROCHLORIDE
     Dosage: UNK
     Route: 041
     Dates: start: 20150310, end: 20150311
  19. CYLOCIDE [Concomitant]
     Active Substance: CYTARABINE
     Dosage: UNK
     Route: 051
     Dates: start: 20131216, end: 20140910
  20. CYLOCIDE [Concomitant]
     Active Substance: CYTARABINE
     Dosage: UNK
     Route: 051
     Dates: start: 20150113, end: 20150113
  21. SOLU-CORTEF [Concomitant]
     Active Substance: HYDROCORTISONE SODIUM SUCCINATE
     Indication: ASPARTATE AMINOTRANSFERASE INCREASED
  22. TEMOZOLOMIDE. [Suspect]
     Active Substance: TEMOZOLOMIDE
     Dosage: 200 MG/SQM, QD
     Route: 041
     Dates: start: 20150410, end: 20150414
  23. COSMEGEN [Suspect]
     Active Substance: DACTINOMYCIN
     Dosage: UNK
     Route: 042
     Dates: start: 20150410, end: 20150410
  24. COSMEGEN [Suspect]
     Active Substance: DACTINOMYCIN
     Dosage: UNK
     Route: 042
     Dates: start: 20150511, end: 20150511
  25. ONCOVIN [Suspect]
     Active Substance: VINCRISTINE SULFATE
     Dosage: UNK
     Route: 042
     Dates: start: 20150113, end: 20150113
  26. ALKERAN [Suspect]
     Active Substance: MELPHALAN
     Dosage: UNK
     Route: 042
     Dates: start: 20150628, end: 20150630
  27. BUSULFEX [Suspect]
     Active Substance: BUSULFAN
     Dosage: UNK
     Route: 041
     Dates: start: 20150624, end: 20150627
  28. SOLU-CORTEF [Concomitant]
     Active Substance: HYDROCORTISONE SODIUM SUCCINATE
     Indication: C-REACTIVE PROTEIN INCREASED
     Dosage: UNK
     Route: 051
     Dates: start: 20150113, end: 20150113
  29. METHOTREXATE [Concomitant]
     Active Substance: METHOTREXATE
     Dosage: UNK
     Route: 051
     Dates: start: 20150113, end: 20150113
  30. CYLOCIDE [Concomitant]
     Active Substance: CYTARABINE
     Dosage: UNK
     Route: 051
     Dates: start: 20150310, end: 20150310
  31. COSMEGEN [Suspect]
     Active Substance: DACTINOMYCIN
     Dosage: UNK
     Route: 042
     Dates: start: 20141113, end: 20141113
  32. ONCOVIN [Suspect]
     Active Substance: VINCRISTINE SULFATE
     Dosage: UNK
     Route: 042
     Dates: start: 20150212, end: 20150212
  33. ENDOXAN [Suspect]
     Active Substance: CYCLOPHOSPHAMIDE
     Dosage: UNK
     Route: 041
     Dates: start: 20150113, end: 20150114
  34. SOLU-CORTEF [Concomitant]
     Active Substance: HYDROCORTISONE SODIUM SUCCINATE
     Indication: BLOOD LACTATE DEHYDROGENASE INCREASED
     Dosage: UNK
     Route: 051
     Dates: start: 20150310, end: 20150310
  35. METHOTREXATE [Concomitant]
     Active Substance: METHOTREXATE
     Dosage: UNK
     Route: 051
     Dates: start: 20131216, end: 20140910
  36. TEMOZOLOMIDE. [Suspect]
     Active Substance: TEMOZOLOMIDE
     Indication: ATYPICAL TERATOID/RHABDOID TUMOUR OF CNS
     Dosage: 200 MG/SQM, QD
     Route: 041
     Dates: start: 20141113, end: 20141117
  37. TEMOZOLOMIDE. [Suspect]
     Active Substance: TEMOZOLOMIDE
     Dosage: 200 MG/SQM, QD
     Route: 041
     Dates: start: 20150511, end: 20150515
  38. ENDOXAN [Suspect]
     Active Substance: CYCLOPHOSPHAMIDE
     Dosage: UNK
     Route: 041
     Dates: start: 20150212, end: 20150214

REACTIONS (60)
  - C-reactive protein increased [Recovered/Resolved]
  - White blood cell count decreased [Recovered/Resolved]
  - Anaemia [Recovered/Resolved]
  - Aspartate aminotransferase increased [Recovered/Resolved]
  - Alanine aminotransferase increased [Recovered/Resolved]
  - Febrile neutropenia [Recovered/Resolved]
  - C-reactive protein increased [Recovered/Resolved]
  - C-reactive protein increased [Recovered/Resolved]
  - White blood cell count decreased [Recovered/Resolved]
  - White blood cell count decreased [Recovered/Resolved]
  - Platelet count decreased [Recovered/Resolved]
  - Protein total decreased [Recovered/Resolved]
  - Aspartate aminotransferase increased [Recovered/Resolved]
  - Blood urea increased [Recovered/Resolved]
  - Febrile neutropenia [Recovered/Resolved]
  - White blood cell count decreased [Recovered/Resolved]
  - Neutrophil count decreased [Recovered/Resolved]
  - Neutrophil count decreased [Recovered/Resolved]
  - Neutrophil count decreased [Recovered/Resolved]
  - Platelet count decreased [Recovered/Resolved]
  - Blood urea increased [Recovered/Resolved]
  - Blood urea increased [Recovered/Resolved]
  - Blood urea increased [Recovered/Resolved]
  - Viral infection [Recovered/Resolved]
  - White blood cell count decreased [Recovered/Resolved]
  - Neutrophil count decreased [Recovered/Resolved]
  - Neutrophil count decreased [Recovered/Resolved]
  - Platelet count decreased [Recovered/Resolved]
  - Alanine aminotransferase increased [Recovered/Resolved]
  - Febrile neutropenia [Recovered/Resolved]
  - Pyrexia [Recovered/Resolved]
  - C-reactive protein increased [Recovered/Resolved]
  - Platelet count decreased [Recovered/Resolved]
  - Aspartate aminotransferase increased [Recovered/Resolved]
  - Alanine aminotransferase increased [Unknown]
  - Alanine aminotransferase increased [Recovered/Resolved]
  - C-reactive protein increased [Recovered/Resolved]
  - C-reactive protein increased [Recovered/Resolved]
  - C-reactive protein increased [Recovered/Resolved]
  - Lymphocyte count decreased [Recovered/Resolved]
  - White blood cell count decreased [Recovered/Resolved]
  - Neutrophil count decreased [Recovered/Resolved]
  - Platelet count decreased [Recovered/Resolved]
  - Anaemia [Recovered/Resolved]
  - Blood albumin decreased [Recovered/Resolved]
  - Blood urea increased [Recovered/Resolved]
  - Influenza [Recovered/Resolved]
  - Influenza [Recovered/Resolved]
  - Platelet count decreased [Recovered/Resolved]
  - Anaemia [Recovered/Resolved]
  - Alanine aminotransferase increased [Recovered/Resolved]
  - Blood urea increased [Recovered/Resolved]
  - Pyrexia [Recovered/Resolved]
  - Febrile neutropenia [Recovered/Resolved]
  - Food allergy [Recovered/Resolved]
  - C-reactive protein increased [Recovered/Resolved]
  - White blood cell count decreased [Recovered/Resolved]
  - Neutrophil count decreased [Recovered/Resolved]
  - Anaemia [Recovered/Resolved]
  - Blood lactate dehydrogenase increased [Recovered/Resolved]

NARRATIVE: CASE EVENT DATE: 20141113
